FAERS Safety Report 8045410-9 (Version None)
Quarter: 2012Q1

REPORT INFORMATION
  Report Type: 
  Country: None (occurrence: None)
  Receive Date: 20120113
  Receipt Date: 20111230
  Transmission Date: 20120608
  Serious: Yes (Hospitalization, Other)
  Sender: FDA-Public Use
  Company Number: GB-CELGENEUS-167-21880-11120534

PATIENT
  Sex: Male
  Weight: 60.9 kg

DRUGS (35)
  1. AMITRIPTYLINE HCL [Concomitant]
     Indication: ANTIDEPRESSANT THERAPY
     Route: 048
     Dates: start: 20101023, end: 20101101
  2. GENTAMICIN [Concomitant]
     Indication: VIRAL INFECTION
     Route: 041
  3. CALCEOS [Concomitant]
     Route: 048
     Dates: start: 20110422, end: 20111201
  4. GABAPENTIN [Concomitant]
     Dosage: 60 MILLIGRAM
     Route: 048
     Dates: start: 20111103, end: 20111109
  5. AMITRIPTYLINE HCL [Concomitant]
     Route: 048
     Dates: start: 20111006, end: 20111010
  6. ORAMORPH SR [Concomitant]
     Route: 048
     Dates: start: 20101026, end: 20101102
  7. MAGNESIUM OXIDE [Concomitant]
     Route: 048
     Dates: start: 20111105, end: 20111106
  8. ASPIRIN [Concomitant]
     Indication: PROPHYLAXIS
     Route: 065
  9. REVLIMID [Suspect]
     Indication: MULTIPLE MYELOMA
     Dosage: 15 MILLIGRAM
     Route: 048
     Dates: start: 20100908, end: 20110118
  10. DEXAMETHASONE TAB [Suspect]
     Route: 048
     Dates: start: 20111103
  11. GABAPENTIN [Concomitant]
     Indication: DRUG THERAPY
     Route: 048
     Dates: start: 20101023, end: 20101102
  12. REVLIMID [Suspect]
     Dosage: 15 MILLIGRAM
     Route: 048
     Dates: start: 20110422, end: 20111027
  13. REVLIMID [Suspect]
     Dosage: 10 MILLIGRAM
     Route: 048
     Dates: start: 20111104, end: 20111201
  14. SODIUM CLODRONATE [Suspect]
     Route: 048
     Dates: start: 20111006, end: 20111009
  15. WARFARIN SODIUM [Concomitant]
     Indication: ANTICOAGULANT THERAPY
     Route: 065
  16. OMEPRAZOLE [Concomitant]
     Indication: PROPHYLAXIS
     Route: 048
     Dates: start: 20101006, end: 20111201
  17. CALCEOS [Concomitant]
     Route: 048
     Dates: start: 20110210, end: 20110419
  18. DEXAMETHASONE TAB [Suspect]
     Indication: MULTIPLE MYELOMA
     Dosage: 5.3333 MILLIGRAM
     Route: 048
     Dates: start: 20100908, end: 20101027
  19. FLUDROCORTISONE ACETATE [Suspect]
     Indication: HORMONE REPLACEMENT THERAPY
     Route: 048
  20. MEROPENEM [Concomitant]
     Indication: INFECTION PROPHYLAXIS
     Route: 048
  21. ASPIRIN [Concomitant]
     Route: 048
     Dates: start: 20111103, end: 20111109
  22. ACETAMINOPHEN [Concomitant]
     Indication: PROPHYLAXIS
     Route: 048
     Dates: start: 20101023, end: 20101101
  23. DOXYCILIN [Concomitant]
     Indication: BACTERIAL INFECTION
     Route: 048
     Dates: start: 20111006, end: 20111010
  24. REVLIMID [Suspect]
     Dosage: DAY 1-21
     Route: 048
     Dates: start: 20110210, end: 20110412
  25. SODIUM CLODRONATE [Suspect]
     Route: 048
     Dates: end: 20111102
  26. AMITRIPTYLINE HCL [Concomitant]
     Indication: PROPHYLAXIS
     Route: 048
     Dates: start: 20111103, end: 20111109
  27. PHOSHATE SANDOZ [Concomitant]
     Route: 048
     Dates: start: 20111108, end: 20111109
  28. ORAMORPH SR [Concomitant]
     Route: 048
     Dates: start: 20111104, end: 20111107
  29. MAGNESIUM OXIDE [Concomitant]
     Route: 048
  30. ASPIRIN [Concomitant]
     Route: 048
     Dates: start: 20111006
  31. GABAPENTIN [Concomitant]
     Indication: PROPHYLAXIS
     Route: 048
     Dates: start: 20111006, end: 20111009
  32. OMEPRAZOLE [Concomitant]
     Dosage: 20 MILLIGRAM
     Route: 048
     Dates: start: 20111103, end: 20111108
  33. CALCEOS [Concomitant]
     Dosage: .3267 GRAM
     Route: 048
     Dates: start: 20101201, end: 20110125
  34. PHOSHATE SANDOZ [Concomitant]
     Indication: VITAMIN D
     Route: 048
     Dates: start: 20101024, end: 20101029
  35. PIPERACILLIN AND TAZOBACTAM [Concomitant]
     Indication: ANTIBIOTIC THERAPY
     Route: 041
     Dates: start: 20101023, end: 20101023

REACTIONS (8)
  - FEBRILE NEUTROPENIA [None]
  - NEUTROPENIA [None]
  - HYPOKALAEMIA [None]
  - THROMBOCYTOPENIA [None]
  - ANAEMIA [None]
  - HYPOCALCAEMIA [None]
  - HYPOMAGNESAEMIA [None]
  - ELECTROLYTE IMBALANCE [None]
